FAERS Safety Report 7707650-5 (Version None)
Quarter: 2011Q3

REPORT INFORMATION
  Report Type: 
  Country: None (occurrence: None)
  Receive Date: 20110824
  Receipt Date: 20110817
  Transmission Date: 20111222
  Serious: Yes (Death, Hospitalization)
  Sender: FDA-Public Use
  Company Number: TW-CELGENEUS-153-C5013-11052877

PATIENT
  Sex: Male
  Weight: 76.6 kg

DRUGS (25)
  1. ULTRACET [Concomitant]
     Indication: BACK PAIN
     Route: 048
     Dates: start: 20110425, end: 20110428
  2. ULTRACET [Concomitant]
     Indication: ABDOMINAL PAIN
     Route: 048
  3. HEPARIN [Concomitant]
     Dosage: 5000
     Route: 065
     Dates: start: 20110512, end: 20110512
  4. MOSAPRIDE [Concomitant]
     Indication: GASTROINTESTINAL HYPOMOTILITY
     Dosage: 5 MILLIGRAM
     Route: 048
     Dates: start: 20110505, end: 20110522
  5. AUGMENTIN '125' [Concomitant]
     Route: 065
     Dates: start: 20110522
  6. REVLIMID [Suspect]
     Indication: MULTIPLE MYELOMA
     Dosage: 15 MILLIGRAM
     Route: 048
     Dates: start: 20110512
  7. ALLEGRA [Concomitant]
     Indication: RASH
     Route: 048
     Dates: start: 20110425, end: 20110428
  8. ULSAFE [Concomitant]
     Indication: PEPTIC ULCER
     Dosage: 150 MILLIGRAM
     Route: 048
     Dates: start: 20110509, end: 20110522
  9. NYSTATIN [Concomitant]
     Route: 002
     Dates: start: 20110408
  10. HARNALIDGE [Concomitant]
     Route: 048
     Dates: start: 20110425, end: 20110428
  11. DEPYRETIN [Concomitant]
     Indication: BACK PAIN
     Route: 048
     Dates: start: 20110425, end: 20110428
  12. DILTIAZEM HCL [Concomitant]
     Indication: PROPHYLAXIS
     Dosage: 90 MILLIGRAM
     Route: 048
     Dates: start: 20110505, end: 20110511
  13. NEORAL [Concomitant]
     Indication: PROPHYLAXIS
     Route: 048
     Dates: start: 20110408
  14. MEGEST [Concomitant]
     Route: 048
     Dates: start: 20110425, end: 20110428
  15. ATIVAN [Concomitant]
     Indication: INSOMNIA
     Route: 048
     Dates: start: 20110425, end: 20110428
  16. VALCYTE [Concomitant]
     Indication: PROPHYLAXIS
     Route: 048
     Dates: start: 20110425
  17. HEPARIN [Concomitant]
     Dosage: 5000
     Route: 065
     Dates: start: 20110505, end: 20110505
  18. BACIDE [Concomitant]
     Indication: ANTI-INFECTIVE THERAPY
     Route: 048
     Dates: start: 20110408
  19. HEPARIN [Concomitant]
     Indication: ANTICOAGULANT THERAPY
     Dosage: 5000
     Route: 065
     Dates: start: 20110428, end: 20110428
  20. NAVOBAN [Concomitant]
     Dosage: 5 MILLIGRAM
     Route: 048
     Dates: start: 20110505, end: 20110509
  21. ALLOPURINOL [Concomitant]
     Dosage: 100 MILLIGRAM
     Route: 048
     Dates: start: 20110505
  22. REVLIMID [Suspect]
     Dosage: 15 MILLIGRAM
     Route: 048
     Dates: start: 20110609, end: 20110617
  23. DORISON [Concomitant]
     Indication: MULTIPLE MYELOMA
     Dosage: 40 MILLIGRAM
     Route: 048
     Dates: start: 20110214
  24. PARMASON [Concomitant]
     Route: 002
     Dates: start: 20110408
  25. ALLEGRA [Concomitant]

REACTIONS (6)
  - GRAFT VERSUS HOST DISEASE [None]
  - MULTIPLE MYELOMA [None]
  - DIARRHOEA [None]
  - RENAL FAILURE ACUTE [None]
  - DEHYDRATION [None]
  - SEPTIC SHOCK [None]
